FAERS Safety Report 4439125-3 (Version None)
Quarter: 2004Q3

REPORT INFORMATION
  Report Type: 
  Country: None (occurrence: None)
  Receive Date: 20040831
  Receipt Date: 20040811
  Transmission Date: 20050211
  Serious: Yes (Disabling)
  Sender: FDA-Public Use
  Company Number: A04200400739

PATIENT
  Sex: Female

DRUGS (1)
  1. SILNOX - (ZOLPIDEM) - TABLET - 10 MG [Suspect]
     Route: 048
     Dates: end: 20040101

REACTIONS (2)
  - DRUG ABUSER [None]
  - INCONTINENCE [None]
